FAERS Safety Report 6517780-1 (Version None)
Quarter: 2009Q4

REPORT INFORMATION
  Report Type: 
  Country: None (occurrence: None)
  Receive Date: 20091218
  Receipt Date: 20091210
  Transmission Date: 20100525
  Serious: Yes (Hospitalization)
  Sender: FDA-Public Use
  Company Number: TPA2009A03313

PATIENT
  Age: 65 Year
  Sex: Female
  Weight: 136.0791 kg

DRUGS (18)
  1. ULORIC [Suspect]
     Indication: GOUT
     Dosage: 40 MG, 1 IN 1 D, PER ORAL
     Route: 048
     Dates: start: 20090921, end: 20090929
  2. FLU SHOT (INFLUENZA VACCINE) [Suspect]
     Indication: INFLUENZA IMMUNISATION
     Dates: start: 20090901, end: 20090901
  3. LANTUS [Concomitant]
  4. LASIX [Concomitant]
  5. POTASSIUM CHLORIDE [Concomitant]
  6. TENORMIN [Concomitant]
  7. PRINIVIL [Concomitant]
  8. COUMADIN [Concomitant]
  9. SIMVASTATIN [Concomitant]
  10. GLUCOPHAGE XR [Concomitant]
  11. LOVAZA [Concomitant]
  12. NAPROSYN [Concomitant]
  13. JANUVIA [Concomitant]
  14. NOVOLOG REGULAR INSULIN (INSULIN ASPART) [Concomitant]
  15. VICODIN [Concomitant]
  16. FOSAMAX [Concomitant]
  17. CALCIUM WITH D (ERGOCALCIFEROL, CALCIUM PHOSPHATE, CALCIUM SODIUM LACT [Concomitant]
  18. MUTIVITAMIN (ERGOCALCIFEROL, ASCORBIC ACID, FOLIC ACID, THIAMINE HYDRO [Concomitant]

REACTIONS (7)
  - ARTHRALGIA [None]
  - BLOOD URIC ACID INCREASED [None]
  - CHILLS [None]
  - DEHYDRATION [None]
  - NAUSEA [None]
  - PAIN IN EXTREMITY [None]
  - RED BLOOD CELL SEDIMENTATION RATE INCREASED [None]
